FAERS Safety Report 24899926 (Version 1)
Quarter: 2025Q1

REPORT INFORMATION
  Report Type: Report from Study
  Country: US (occurrence: US)
  Receive Date: 20250129
  Receipt Date: 20250129
  Transmission Date: 20250409
  Serious: Yes (Hospitalization, Other)
  Sender: GILEAD
  Company Number: US-GILEAD-2025-0701523

PATIENT
  Sex: Female

DRUGS (30)
  1. AZTREONAM LYSINE [Suspect]
     Active Substance: AZTREONAM LYSINE
     Indication: Illness
     Route: 055
  2. PULMOZYME [Concomitant]
     Active Substance: DORNASE ALFA
  3. FINTEPLA [Concomitant]
     Active Substance: FENFLURAMINE
  4. ENALAPRIL [Concomitant]
     Active Substance: ENALAPRIL
  5. OXYGEN [Concomitant]
     Active Substance: OXYGEN
  6. CREON [Concomitant]
     Active Substance: PANCRELIPASE AMYLASE\PANCRELIPASE LIPASE\PANCRELIPASE PROTEASE
  7. LEVALBUTEROL [Concomitant]
     Active Substance: LEVALBUTEROL
  8. CLONAZEPAM [Concomitant]
     Active Substance: CLONAZEPAM
  9. FLONASE [Concomitant]
     Active Substance: FLUTICASONE PROPIONATE
  10. METOPROLOL [Concomitant]
     Active Substance: METOPROLOL
  11. AMOXICILLIN [Concomitant]
     Active Substance: AMOXICILLIN
  12. PULMICORT TURBUHALER [Concomitant]
     Active Substance: BUDESONIDE
  13. ZOSYN [Concomitant]
     Active Substance: PIPERACILLIN SODIUM\TAZOBACTAM SODIUM
  14. CHOLECALCIFEROL [Concomitant]
     Active Substance: CHOLECALCIFEROL
  15. PHENOBARBITAL [Concomitant]
     Active Substance: PHENOBARBITAL
  16. LACOSAMIDE [Concomitant]
     Active Substance: LACOSAMIDE
  17. FENOFIBRATE [Concomitant]
     Active Substance: FENOFIBRATE
  18. SODIUM BICARBONATE [Concomitant]
     Active Substance: SODIUM BICARBONATE
  19. OMEPRAZOLE [Concomitant]
     Active Substance: OMEPRAZOLE
  20. FERROUS SULFATE [Concomitant]
     Active Substance: FERROUS SULFATE
  21. HYDROCORTISONE [Concomitant]
     Active Substance: HYDROCORTISONE
  22. CHILDRENS ALLERGY RELIEF (CETIRIZINE HYDROCHLORIDE) [Concomitant]
     Active Substance: CETIRIZINE HYDROCHLORIDE
  23. FYCOMPA [Concomitant]
     Active Substance: PERAMPANEL
  24. NYSTATIN [Concomitant]
     Active Substance: NYSTATIN
  25. TACROLIMUS [Concomitant]
     Active Substance: TACROLIMUS
  26. DIAZEPAM [Concomitant]
     Active Substance: DIAZEPAM
  27. LOPERAMIDE [Concomitant]
     Active Substance: LOPERAMIDE
  28. TOPIRAMATE [Concomitant]
     Active Substance: TOPIRAMATE
  29. VALTOCO [Concomitant]
     Active Substance: DIAZEPAM
  30. MAGONATE [MAGNESIUM CARBONATE] [Concomitant]

REACTIONS (2)
  - Pneumonia [Unknown]
  - Product use issue [Unknown]
